FAERS Safety Report 8305513-8 (Version None)
Quarter: 2012Q2

REPORT INFORMATION
  Report Type: 
  Country: None (occurrence: None)
  Receive Date: 20120423
  Receipt Date: 20120416
  Transmission Date: 20120825
  Serious: Yes (Hospitalization)
  Sender: FDA-Public Use
  Company Number: FR-GLAXOSMITHKLINE-B0791123A

PATIENT
  Sex: Female

DRUGS (5)
  1. ZANTAC [Suspect]
     Indication: PREMEDICATION
     Dosage: 25MG SINGLE DOSE
     Route: 042
     Dates: start: 20120209, end: 20120209
  2. CARBOPLATIN [Concomitant]
     Indication: NEOPLASM MALIGNANT
     Route: 065
  3. METHYLPREDNISOLONE [Suspect]
     Indication: PREMEDICATION
     Dosage: 60MG SINGLE DOSE
     Route: 042
     Dates: start: 20120209, end: 20120209
  4. POLARAMINE [Suspect]
     Indication: PREMEDICATION
     Dosage: 2.5MG SINGLE DOSE
     Route: 042
     Dates: start: 20120209, end: 20120209
  5. PACLITAXEL [Concomitant]
     Indication: NEOPLASM MALIGNANT
     Route: 065

REACTIONS (2)
  - PRURITUS [None]
  - ERYTHEMA [None]
